FAERS Safety Report 5081472-9 (Version None)
Quarter: 2006Q3

REPORT INFORMATION
  Report Type: 
  Country: None (occurrence: None)
  Receive Date: 20060810
  Receipt Date: 20060728
  Transmission Date: 20061208
  Serious: Yes (Hospitalization)
  Sender: FDA-Public Use
  Company Number: FR200606002474

PATIENT
  Age: 35 Year
  Sex: Male

DRUGS (11)
  1. ZYPREXA [Suspect]
     Indication: ABNORMAL BEHAVIOUR
     Dosage: 20 MG, DAILY (1/D), ORAL
     Route: 048
     Dates: start: 20040501, end: 20060512
  2. DEPAKENE [Concomitant]
  3. FLAGYL [Concomitant]
  4. RULID /FRA/ (ROXITHROMYCIN) [Concomitant]
  5. DALTEPARIN SODIUM (HEPARIN-FRACTION, SODIUM SALT) [Concomitant]
  6. ZOLOFT [Concomitant]
  7. LIORESAL [Concomitant]
  8. TRANXENE [Concomitant]
  9. POTASSIUM CHLORIDE [Concomitant]
  10. MOTILIUM [Concomitant]
  11. FRAGMIN [Concomitant]

REACTIONS (8)
  - HYPOTENSION [None]
  - PANCREATIC NECROSIS [None]
  - PANCREATITIS ACUTE [None]
  - PORTAL VEIN THROMBOSIS [None]
  - SEPSIS [None]
  - SPLENIC NECROSIS [None]
  - SPLENIC VEIN THROMBOSIS [None]
  - TACHYCARDIA [None]
